FAERS Safety Report 14626849 (Version 1)
Quarter: 2018Q1

REPORT INFORMATION
  Report Type: Spontaneous
  Country: US (occurrence: US)
  Receive Date: 20180311
  Receipt Date: 20180311
  Transmission Date: 20180509
  Serious: Yes (Hospitalization, Other)
  Sender: FDA-Public Use
  Company Number: None

PATIENT
  Age: 60 Year
  Sex: Male

DRUGS (1)
  1. PREDNISONE. [Suspect]
     Active Substance: PREDNISONE
     Indication: HEPATITIS C
     Route: 048
     Dates: start: 20180108

REACTIONS (9)
  - Hyperglycaemia [None]
  - Affective disorder [None]
  - Diarrhoea [None]
  - Hypokalaemia [None]
  - Hypomagnesaemia [None]
  - Agitation [None]
  - Malaise [None]
  - Asthenia [None]
  - Mental status changes [None]

NARRATIVE: CASE EVENT DATE: 20180125
